FAERS Safety Report 15308556 (Version 2)
Quarter: 2018Q3

REPORT INFORMATION
  Report Type: Report from Study
  Country: US (occurrence: US)
  Receive Date: 20180822
  Receipt Date: 20180831
  Transmission Date: 20181010
  Serious: Yes (Other)
  Sender: FDA-Public Use
  Company Number: US-INCYTE CORPORATION-2018IN008134

PATIENT

DRUGS (1)
  1. JAKAFI [Suspect]
     Active Substance: RUXOLITINIB
     Indication: MYELOFIBROSIS
     Dosage: 10 MG, DAILY ON TU/THUR/SAT AFTER DIALYSIS
     Route: 065
     Dates: end: 20180809

REACTIONS (6)
  - Inappropriate schedule of drug administration [Unknown]
  - Neutropenia [Recovering/Resolving]
  - Urinary tract infection [Unknown]
  - Blood count abnormal [Unknown]
  - Chronic kidney disease [Recovering/Resolving]
  - Performance status decreased [Unknown]
